FAERS Safety Report 26074672 (Version 1)
Quarter: 2025Q4

REPORT INFORMATION
  Report Type: Spontaneous
  Country: JP (occurrence: JP)
  Receive Date: 20251121
  Receipt Date: 20251121
  Transmission Date: 20260117
  Serious: Yes (Hospitalization, Disabling)
  Sender: ROCHE
  Company Number: JP-ROCHE-10000439178

PATIENT
  Age: 9 Decade
  Sex: Female

DRUGS (1)
  1. XOFLUZA [Suspect]
     Active Substance: BALOXAVIR MARBOXIL
     Indication: Product used for unknown indication
     Route: 048
     Dates: start: 20241227, end: 20241227

REACTIONS (1)
  - Activities of daily living decreased [Not Recovered/Not Resolved]
